FAERS Safety Report 13388895 (Version 1)
Quarter: 2017Q1

REPORT INFORMATION
  Report Type: Spontaneous
  Country: FR (occurrence: FR)
  Receive Date: 20170331
  Receipt Date: 20170331
  Transmission Date: 20170429
  Serious: Yes (Hospitalization)
  Sender: FDA-Public Use
  Company Number: FR-ROCHE-1912920

PATIENT
  Age: 76 Year
  Sex: Male

DRUGS (17)
  1. PREVISCAN (FRANCE) [Suspect]
     Active Substance: FLUINDIONE
     Indication: PRODUCT USED FOR UNKNOWN INDICATION
     Dosage: LONG-TERM TREATMENT
     Route: 048
     Dates: end: 20170208
  2. SERESTA [Concomitant]
     Active Substance: OXAZEPAM
     Dosage: LONG-TERM TREATMENT
     Route: 048
     Dates: end: 20170208
  3. LASIX SPECIAL [Concomitant]
     Dosage: LONG-TERM TREATMENT
     Route: 048
     Dates: end: 20170208
  4. CORDARONE [Concomitant]
     Active Substance: AMIODARONE HYDROCHLORIDE
     Dosage: LONG-TERM TREATMENT
     Route: 048
     Dates: end: 20170208
  5. HYDROCORTISONE. [Suspect]
     Active Substance: HYDROCORTISONE
     Indication: SEPSIS
     Route: 042
     Dates: start: 20170202, end: 20170205
  6. EZETIMIBE. [Concomitant]
     Active Substance: EZETIMIBE
     Dosage: LONG-TERM TREATMENT
     Route: 048
     Dates: end: 20170208
  7. SERETIDE [Concomitant]
     Active Substance: FLUTICASONE PROPIONATE\SALMETEROL XINAFOATE
     Dosage: 250/25 MCG/DOSE?LONG-TERM TREATMENT
     Route: 055
     Dates: end: 20170208
  8. ALLOPURINOL. [Concomitant]
     Active Substance: ALLOPURINOL
     Dosage: LONG-TERM TREATMENT
     Route: 048
     Dates: end: 20170208
  9. ROCEPHINE [Suspect]
     Active Substance: CEFTRIAXONE SODIUM
     Indication: SEPSIS
     Route: 042
     Dates: start: 20170201, end: 20170205
  10. FUROSEMIDE. [Suspect]
     Active Substance: FUROSEMIDE
     Indication: CARDIAC FAILURE
     Dosage: 80MG TWICE DAILY THEN 40MG TWICE DAILY
     Route: 042
     Dates: start: 20170201, end: 20170205
  11. KARDEGIC [Concomitant]
     Active Substance: ASPIRIN LYSINE
     Dosage: LONG-TERM TREATMENT
     Route: 048
     Dates: end: 20170208
  12. BISOPROLOL HEMIFUMARATE [Concomitant]
     Active Substance: BISOPROLOL FUMARATE
     Dosage: LONG-TERM TREATMENT
     Route: 048
     Dates: end: 20170208
  13. PRAVASTATIN SODIUM. [Concomitant]
     Active Substance: PRAVASTATIN SODIUM
     Dosage: LONG-TERM TREATMENT
     Route: 048
     Dates: end: 20170208
  14. ROVAMYCINE [Concomitant]
     Active Substance: SPIRAMYCIN
     Route: 042
     Dates: start: 20170201, end: 20170208
  15. IRBESARTAN. [Concomitant]
     Active Substance: IRBESARTAN
     Dosage: LONG-TERM TREATMENT
     Route: 048
     Dates: end: 20170208
  16. LANSOPRAZOLE. [Concomitant]
     Active Substance: LANSOPRAZOLE
     Dosage: LONG-TERM TREATMENT
     Route: 048
     Dates: end: 20170208
  17. TERCIAN [Suspect]
     Active Substance: CYAMEMAZINE
     Indication: PRODUCT USED FOR UNKNOWN INDICATION
     Route: 048
     Dates: end: 20170205

REACTIONS (4)
  - Myoclonus [Recovered/Resolved]
  - Delirium [Recovered/Resolved]
  - Disturbance in attention [Recovered/Resolved]
  - Encephalopathy [Recovered/Resolved]

NARRATIVE: CASE EVENT DATE: 20170205
